FAERS Safety Report 22253264 (Version 2)
Quarter: 2023Q2

REPORT INFORMATION
  Report Type: Report from Study
  Country: CA (occurrence: None)
  Receive Date: 20230426
  Receipt Date: 20230518
  Transmission Date: 20230722
  Serious: Yes (Other)
  Sender: FDA-Public Use
  Company Number: CA-Merck Healthcare KGaA-9397312

PATIENT
  Sex: Female

DRUGS (1)
  1. SAIZEN [Suspect]
     Active Substance: SOMATROPIN
     Indication: Growth hormone deficiency
     Route: 058
     Dates: start: 20120206

REACTIONS (4)
  - Spinal stenosis [Unknown]
  - Limb discomfort [Unknown]
  - Bladder discomfort [Unknown]
  - Abdominal discomfort [Unknown]
